FAERS Safety Report 17397844 (Version 1)
Quarter: 2020Q1

REPORT INFORMATION
  Report Type: Spontaneous
  Country: SE (occurrence: SE)
  Receive Date: 20200210
  Receipt Date: 20200210
  Transmission Date: 20200409
  Serious: Yes (Hospitalization)
  Sender: FDA-Public Use
  Company Number: SE-MYLANLABS-2020M1013895

PATIENT
  Sex: Male

DRUGS (4)
  1. STESOLID [Suspect]
     Active Substance: DIAZEPAM
     Indication: PRODUCT USED FOR UNKNOWN INDICATION
     Dosage: ^2 ST^
     Route: 048
     Dates: start: 20180822, end: 20180822
  2. ZOLPIDEM [Suspect]
     Active Substance: ZOLPIDEM TARTRATE
     Indication: PRODUCT USED FOR UNKNOWN INDICATION
     Dosage: ^6-8^
     Route: 048
     Dates: start: 20180822, end: 20180822
  3. OXASCAND [Suspect]
     Active Substance: OXAZEPAM
     Indication: PRODUCT USED FOR UNKNOWN INDICATION
     Dosage: ^4^
     Route: 048
     Dates: start: 20180822, end: 20180822
  4. PROPIOMAZINE [Suspect]
     Active Substance: PROPIOMAZINE
     Indication: PRODUCT USED FOR UNKNOWN INDICATION
     Dosage: UNK (UPP TILL 20 PROPAVAN)
     Route: 048
     Dates: start: 20180822, end: 20180822

REACTIONS (3)
  - Tachycardia [Unknown]
  - Sleep disorder [Unknown]
  - Intentional overdose [Unknown]

NARRATIVE: CASE EVENT DATE: 20180823
